FAERS Safety Report 25807981 (Version 1)
Quarter: 2025Q3

REPORT INFORMATION
  Report Type: Spontaneous
  Country: US (occurrence: US)
  Receive Date: 20250916
  Receipt Date: 20250916
  Transmission Date: 20251021
  Serious: No
  Sender: Alora Pharma
  Company Number: US-OSMOTICA PHARMACEUTICALS-2024ALO00550

PATIENT
  Age: 20 Year
  Sex: Female
  Weight: 52.154 kg

DRUGS (2)
  1. METHYLPHENIDATE HYDROCHLORIDE [Suspect]
     Active Substance: METHYLPHENIDATE HYDROCHLORIDE
     Indication: Attention deficit hyperactivity disorder
  2. METHYLPHENIDATE HYDROCHLORIDE [Suspect]
     Active Substance: METHYLPHENIDATE HYDROCHLORIDE
     Dosage: 36 MG, 1X/DAY (ALSO REPORTED AS 57 MG OR 36 MG IN NOV-2024))
     Route: 048

REACTIONS (5)
  - Feeling abnormal [Unknown]
  - Therapeutic product effect decreased [None]
  - Product colour issue [Unknown]
  - Product formulation issue [Unknown]
  - Product dosage form issue [Unknown]

NARRATIVE: CASE EVENT DATE: 20241101
